FAERS Safety Report 9889581 (Version 2)
Quarter: 2014Q1

REPORT INFORMATION
  Report Type: Spontaneous
  Country: HU (occurrence: HU)
  Receive Date: 20140211
  Receipt Date: 20140303
  Transmission Date: 20141002
  Serious: Yes (Hospitalization)
  Sender: FDA-Public Use
  Company Number: US-ASTRAZENECA-2014SE09188

PATIENT
  Age: 7 Month
  Sex: Female

DRUGS (4)
  1. SYNAGIS [Suspect]
     Indication: ANTIVIRAL PROPHYLAXIS
     Dosage: SYNAGIS DOSE WAS GIVEN BASED ON BODY WEIGHT, MONTHLY
     Route: 030
     Dates: start: 20131104, end: 20131104
  2. SYNAGIS [Suspect]
     Indication: ANTIVIRAL PROPHYLAXIS
     Dosage: MONTHLY
     Route: 030
     Dates: start: 201312, end: 201312
  3. SYNAGIS [Suspect]
     Indication: ANTIVIRAL PROPHYLAXIS
     Dosage: MONTHLY
     Route: 030
     Dates: start: 20140106, end: 20140106
  4. SYNAGIS [Suspect]
     Indication: ANTIVIRAL PROPHYLAXIS
     Dosage: MONTHLY
     Route: 030
     Dates: start: 20140206, end: 20140206

REACTIONS (8)
  - Rotavirus infection [Unknown]
  - Vomiting [Recovered/Resolved]
  - Decreased appetite [Not Recovered/Not Resolved]
  - Weight gain poor [Not Recovered/Not Resolved]
  - Bradycardia [Recovered/Resolved]
  - Diarrhoea [Not Recovered/Not Resolved]
  - Bacterial infection [Not Recovered/Not Resolved]
  - Pyrexia [Unknown]
